FAERS Safety Report 10186230 (Version 1)
Quarter: 2014Q2

REPORT INFORMATION
  Report Type: Spontaneous
  Country: FR (occurrence: FR)
  Receive Date: 20140521
  Receipt Date: 20140521
  Transmission Date: 20141212
  Serious: Yes (Hospitalization)
  Sender: FDA-Public Use
  Company Number: FR-GLAXOSMITHKLINE-B0993559A

PATIENT
  Age: 51 Year
  Sex: Male

DRUGS (15)
  1. NIMBEX [Suspect]
     Indication: ANAESTHESIA
     Route: 042
     Dates: start: 20121217, end: 20121217
  2. ZINNAT [Suspect]
     Indication: ANTIBIOTIC PROPHYLAXIS
     Route: 042
     Dates: start: 20121217, end: 20121217
  3. HEPARIN SODIUM [Suspect]
     Indication: EXTRACORPOREAL CIRCULATION
     Route: 042
     Dates: start: 20121217, end: 20121217
  4. BISOPROLOL [Suspect]
     Route: 048
     Dates: end: 20121216
  5. EUPANTOL [Suspect]
     Route: 048
     Dates: end: 20121216
  6. ATARAX [Suspect]
     Indication: ANXIETY
     Route: 048
     Dates: start: 20121216, end: 20121217
  7. EXACYL [Suspect]
     Indication: HAEMORRHAGE PROPHYLAXIS
     Route: 042
     Dates: start: 20121217, end: 20121217
  8. ALPRAZOLAM [Suspect]
     Indication: ANXIETY
     Dosage: .5MG SEE DOSAGE TEXT
     Route: 048
     Dates: start: 20121216, end: 20121217
  9. PROPOFOL [Suspect]
     Indication: ANAESTHESIA
     Route: 042
     Dates: start: 20121217, end: 20121217
  10. SUFENTANIL [Suspect]
     Indication: ANAESTHESIA
     Route: 042
     Dates: start: 20121217, end: 20121217
  11. KETAMINE [Suspect]
     Indication: ANAESTHESIA
     Route: 042
     Dates: start: 20121217, end: 20121217
  12. PROTAMINE [Suspect]
     Route: 042
     Dates: start: 20121217, end: 20121217
  13. CRESTOR [Concomitant]
     Indication: CARDIOVASCULAR EVENT PROPHYLAXIS
     Route: 048
     Dates: end: 20121220
  14. EPHEDRINE [Concomitant]
     Dates: start: 20121217
  15. HEMOSTATIC [Concomitant]

REACTIONS (1)
  - Post procedural haemorrhage [Recovered/Resolved]
